FAERS Safety Report 15273784 (Version 1)
Quarter: 2018Q3

REPORT INFORMATION
  Report Type: Spontaneous
  Country: US (occurrence: US)
  Receive Date: 20180813
  Receipt Date: 20180813
  Transmission Date: 20181010
  Serious: Yes (Other)
  Sender: FDA-Public Use
  Company Number: US-GLAXOSMITHKLINE-US2018141943

PATIENT
  Age: 40 Year
  Sex: Female

DRUGS (4)
  1. VENTOLIN HFA [Suspect]
     Active Substance: ALBUTEROL SULFATE
     Indication: ASTHMA
     Dosage: 2 PUFF(S), PRN
     Route: 055
  2. LOSARTAN. [Concomitant]
     Active Substance: LOSARTAN
  3. ADVAIR DISKUS [Suspect]
     Active Substance: FLUTICASONE PROPIONATE\SALMETEROL XINAFOATE
     Indication: ASTHMA
     Dosage: 1 PUFF(S), BID
     Route: 055
  4. VALSARTAN. [Suspect]
     Active Substance: VALSARTAN
     Indication: HYPERTENSION
     Dosage: UNK

REACTIONS (12)
  - Infection [Unknown]
  - Cataract operation [Unknown]
  - Colectomy [Recovered/Resolved]
  - Cataract [Unknown]
  - Hypertension [Unknown]
  - Sepsis [Unknown]
  - Peritonitis [Unknown]
  - Lesion excision [Unknown]
  - Macular hole [Not Recovered/Not Resolved]
  - Abdominal abscess [Unknown]
  - Breast cancer [Unknown]
  - Movement disorder [Unknown]

NARRATIVE: CASE EVENT DATE: 199206
